FAERS Safety Report 14583508 (Version 1)
Quarter: 2018Q1

REPORT INFORMATION
  Report Type: Spontaneous
  Country: US (occurrence: US)
  Receive Date: 20180227
  Receipt Date: 20180227
  Transmission Date: 20180509
  Serious: Yes (Hospitalization)
  Sender: FDA-Public Use
  Company Number: None

PATIENT
  Age: 68 Year
  Sex: Male
  Weight: 95.4 kg

DRUGS (10)
  1. GLUCOSAMINE 500MG PO QD [Concomitant]
  2. METFORMIN 100MG 1 PO BID [Concomitant]
  3. TOUJEO 14U QD [Concomitant]
  4. SIMVASTATIN 5MG QD [Concomitant]
  5. ASPIRIN 81 MG 1 TABLET PO QD [Concomitant]
  6. AMLODIPINE 10MG 1 TABLET PO HS [Concomitant]
  7. FLONASE [Concomitant]
     Active Substance: FLUTICASONE PROPIONATE
  8. LEVITRA 20MG TAKE 1/2 PO PRN [Concomitant]
  9. INVOKANA [Suspect]
     Active Substance: CANAGLIFLOZIN
     Indication: TYPE 2 DIABETES MELLITUS
     Route: 048
     Dates: end: 20180227
  10. LISINOPRIL 40MG 1 PO QD [Concomitant]

REACTIONS (1)
  - Toe amputation [None]

NARRATIVE: CASE EVENT DATE: 20171216
